FAERS Safety Report 10554362 (Version 2)
Quarter: 2014Q4

REPORT INFORMATION
  Report Type: Spontaneous
  Country: US (occurrence: US)
  Receive Date: 20141030
  Receipt Date: 20141126
  Transmission Date: 20150529
  Serious: Yes (Hospitalization)
  Sender: FDA-Public Use
  Company Number: US-EISAI MEDICAL RESEARCH-E2007-01851-SPO-US

PATIENT
  Age: 26 Year
  Sex: Female
  Weight: 72.6 kg

DRUGS (10)
  1. FYCOMPA [Suspect]
     Active Substance: PERAMPANEL
     Indication: JUVENILE MYOCLONIC EPILEPSY
     Route: 048
     Dates: start: 2014, end: 201408
  2. PRIMIDONE. [Concomitant]
     Active Substance: PRIMIDONE
     Indication: JUVENILE MYOCLONIC EPILEPSY
     Route: 048
     Dates: start: 201408, end: 201408
  3. TOPAMAX [Concomitant]
     Active Substance: TOPIRAMATE
     Indication: JUVENILE MYOCLONIC EPILEPSY
  4. PRIMIDONE. [Concomitant]
     Active Substance: PRIMIDONE
     Indication: TREMOR
     Route: 048
     Dates: start: 201408
  5. FYCOMPA [Suspect]
     Active Substance: PERAMPANEL
     Dosage: 2 TABLETS FOR 1 TO 2 DAYS (DOSE UNKNOWN)
     Route: 048
     Dates: start: 201408, end: 201408
  6. FYCOMPA [Suspect]
     Active Substance: PERAMPANEL
     Dosage: 1 TABLET FOR 1 TO 2 DAYS UNTIL DISCONTINUED (DOSE UNKNOWN)
     Route: 048
     Dates: start: 201408, end: 201408
  7. XANAX [Concomitant]
     Active Substance: ALPRAZOLAM
     Indication: SEIZURE
     Dosage: 3 TABLETS PRN
  8. FYCOMPA [Suspect]
     Active Substance: PERAMPANEL
     Indication: EPILEPSY
     Route: 048
     Dates: start: 201406, end: 2014
  9. TOPAMAX [Concomitant]
     Active Substance: TOPIRAMATE
     Indication: EPILEPSY
     Dosage: UNKNOWN
     Route: 048
     Dates: end: 2014
  10. PRIMIDONE. [Concomitant]
     Active Substance: PRIMIDONE
     Indication: EPILEPSY
     Route: 048
     Dates: end: 201408

REACTIONS (13)
  - Mood altered [Recovered/Resolved]
  - Dysarthria [Recovered/Resolved]
  - Confusional state [Recovered/Resolved]
  - Vision blurred [Recovered/Resolved]
  - Fatigue [Recovered/Resolved]
  - Anger [Recovered/Resolved]
  - Diplopia [Recovered/Resolved]
  - Self injurious behaviour [Recovered/Resolved]
  - Aggression [Recovered/Resolved]
  - Amnesia [Recovering/Resolving]
  - Eye movement disorder [Recovered/Resolved]
  - Gait disturbance [Recovered/Resolved]
  - Eye disorder [Recovered/Resolved]

NARRATIVE: CASE EVENT DATE: 2014
